FAERS Safety Report 6941458-3 (Version None)
Quarter: 2010Q3

REPORT INFORMATION
  Report Type: 
  Country: None (occurrence: None)
  Receive Date: 20100825
  Receipt Date: 20100816
  Transmission Date: 20110219
  Serious: Yes (Hospitalization, Other)
  Sender: FDA-Public Use
  Company Number: CA-ABBOTT-10P-028-0665053-00

PATIENT
  Sex: Male
  Weight: 77.18 kg

DRUGS (6)
  1. HUMIRA [Suspect]
     Indication: PSORIATIC ARTHROPATHY
     Route: 058
     Dates: start: 20080823, end: 20100203
  2. LIPITOR [Concomitant]
     Indication: BLOOD CHOLESTEROL
     Route: 048
  3. SUFASALAZINE [Concomitant]
     Indication: PRODUCT USED FOR UNKNOWN INDICATION
     Route: 048
  4. APO PANTOPRAZOLE [Concomitant]
     Indication: GASTRIC DISORDER
     Route: 048
  5. APO DIVALPROEX [Concomitant]
     Indication: EPILEPSY
     Route: 048
  6. APO SALVENT [Concomitant]
     Indication: PULMONARY EMBOLISM

REACTIONS (4)
  - ASCITES [None]
  - INFECTION [None]
  - LUNG NEOPLASM MALIGNANT [None]
  - PULMONARY EMBOLISM [None]
